FAERS Safety Report 12913245 (Version 1)
Quarter: 2016Q4

REPORT INFORMATION
  Report Type: Report from Study
  Country: GB (occurrence: GB)
  Receive Date: 20161104
  Receipt Date: 20161104
  Transmission Date: 20170207
  Serious: Yes (Death)
  Sender: FDA-Public Use
  Company Number: GB-JNJFOC-20161102754

PATIENT
  Age: 93 Year
  Sex: Female
  Weight: 52 kg

DRUGS (1)
  1. STELARA [Suspect]
     Active Substance: USTEKINUMAB
     Indication: PSORIASIS
     Route: 058
     Dates: start: 20120723, end: 20140129

REACTIONS (4)
  - Ischaemic stroke [Fatal]
  - Lower respiratory tract infection [Fatal]
  - Clostridium difficile infection [Fatal]
  - Hypertension [Fatal]

NARRATIVE: CASE EVENT DATE: 20160707
